FAERS Safety Report 12000363 (Version 1)
Quarter: 2016Q1

REPORT INFORMATION
  Report Type: Report from Study
  Country: US (occurrence: US)
  Receive Date: 20160204
  Receipt Date: 20160204
  Transmission Date: 20160526
  Serious: No
  Sender: FDA-Public Use
  Company Number: US-ABBVIE-15K-163-1421988-00

PATIENT
  Age: 44 Year
  Sex: Female
  Weight: 104.42 kg

DRUGS (3)
  1. HUMIRA [Suspect]
     Active Substance: ADALIMUMAB
     Indication: COLITIS ULCERATIVE
  2. PROGESTIN [Concomitant]
     Active Substance: PROGESTERONE
     Indication: PROPHYLAXIS
  3. HUMIRA [Suspect]
     Active Substance: ADALIMUMAB
     Indication: CROHN^S DISEASE
     Dosage: LOADING DOSE
     Route: 058
     Dates: start: 20150701, end: 20150701

REACTIONS (14)
  - Balance disorder [Not Recovered/Not Resolved]
  - Feeling hot [Not Recovered/Not Resolved]
  - Incorrect dose administered [Unknown]
  - Device issue [Unknown]
  - Feeling abnormal [Recovering/Resolving]
  - Dizziness [Not Recovered/Not Resolved]
  - Dystonia [Recovering/Resolving]
  - Hyperhidrosis [Not Recovered/Not Resolved]
  - Diarrhoea [Not Recovered/Not Resolved]
  - Speech disorder [Recovering/Resolving]
  - Nausea [Not Recovered/Not Resolved]
  - Aphasia [Recovering/Resolving]
  - Headache [Not Recovered/Not Resolved]
  - Flushing [Not Recovered/Not Resolved]

NARRATIVE: CASE EVENT DATE: 20150701
